FAERS Safety Report 9277391 (Version 2)
Quarter: 2013Q2

REPORT INFORMATION
  Report Type: Spontaneous
  Country: BR (occurrence: BR)
  Receive Date: 20130508
  Receipt Date: 20130524
  Transmission Date: 20140414
  Serious: Yes (Other)
  Sender: FDA-Public Use
  Company Number: BR-SANOFI-AVENTIS-2013SA044554

PATIENT
  Age: 57 Year
  Sex: Female

DRUGS (4)
  1. LANTUS [Suspect]
     Indication: TYPE 1 DIABETES MELLITUS
     Route: 058
  2. APIDRA [Suspect]
     Indication: TYPE 1 DIABETES MELLITUS
     Dosage: 4 TIMES/WEEK,ACCORDING TO GLYCAEMIA (ABOUT 3- 5 IU)
     Route: 058
  3. CLIKSTAR [Concomitant]
     Indication: DEVICE THERAPY
     Dates: end: 201304
  4. CLIKSTAR [Concomitant]
     Indication: DEVICE THERAPY
     Dates: end: 201304

REACTIONS (8)
  - Limb crushing injury [Recovering/Resolving]
  - Pain in extremity [Recovering/Resolving]
  - Fall [Recovering/Resolving]
  - Head injury [Recovering/Resolving]
  - Vomiting [Recovering/Resolving]
  - Nail discolouration [Recovering/Resolving]
  - Skin discolouration [Recovering/Resolving]
  - Injection site pain [Not Recovered/Not Resolved]
